FAERS Safety Report 4772151-3 (Version None)
Quarter: 2005Q3

REPORT INFORMATION
  Report Type: 
  Country: None (occurrence: None)
  Receive Date: 20050919
  Receipt Date: 20040811
  Transmission Date: 20060218
  Serious: No
  Sender: FDA-Public Use
  Company Number: US-BRISTOL-MYERS SQUIBB COMPANY-12668943

PATIENT
  Age: 39 Year
  Sex: Male
  Weight: 127 kg

DRUGS (6)
  1. DEFINITY [Suspect]
     Indication: ECHOCARDIOGRAM
     Route: 040
     Dates: start: 20040810, end: 20040810
  2. WARFINE [Concomitant]
  3. LASIX [Concomitant]
  4. ALTACE [Concomitant]
  5. ADVAIR DISKUS 100/50 [Concomitant]
  6. NITROQUICK [Concomitant]

REACTIONS (1)
  - HYPOAESTHESIA [None]
